FAERS Safety Report 4981631-7 (Version None)
Quarter: 2006Q2

REPORT INFORMATION
  Report Type: 
  Country: None (occurrence: None)
  Receive Date: 20060425
  Receipt Date: 20060412
  Transmission Date: 20061013
  Serious: Yes (Other)
  Sender: FDA-Public Use
  Company Number: PHEH2006US04891

PATIENT
  Sex: Male

DRUGS (2)
  1. ZOMETA [Suspect]
  2. FOSAMAX [Suspect]

REACTIONS (2)
  - OSTEONECROSIS [None]
  - TOOTH LOSS [None]
